FAERS Safety Report 19844484 (Version 3)
Quarter: 2022Q1

REPORT INFORMATION
  Report Type: Report from Study
  Country: US (occurrence: US)
  Receive Date: 20210917
  Receipt Date: 20220115
  Transmission Date: 20220423
  Serious: Yes (Hospitalization)
  Sender: FDA-Public Use
  Company Number: US-REGENERON PHARMACEUTICALS, INC.-2021-84521

PATIENT
  Age: 42 Year
  Sex: Female

DRUGS (1)
  1. CASIRIVIMAB\IMDEVIMAB [Suspect]
     Active Substance: CASIRIVIMAB\IMDEVIMAB
     Indication: COVID-19 treatment
     Dosage: 1200 MG, SINGLE
     Route: 041
     Dates: start: 20210908, end: 20210908

REACTIONS (6)
  - Apnoea [Recovered/Resolved]
  - Cyanosis [Recovered/Resolved]
  - Anaphylactic reaction [Recovered/Resolved]
  - Generalised tonic-clonic seizure [Recovered/Resolved]
  - Disorientation [Recovered/Resolved]
  - Confusional state [Recovered/Resolved]

NARRATIVE: CASE EVENT DATE: 20210908
